FAERS Safety Report 9809099 (Version 2)
Quarter: 2014Q2

REPORT INFORMATION
  Report Type: Spontaneous
  Country: SE (occurrence: SE)
  Receive Date: 20140110
  Receipt Date: 20140420
  Transmission Date: 20141212
  Serious: Yes (Disabling)
  Sender: FDA-Public Use
  Company Number: PHHY2014SE002196

PATIENT
  Sex: 0

DRUGS (10)
  1. ZOMETA [Suspect]
     Dosage: UNK UKN, UNK
     Route: 042
     Dates: start: 2003, end: 2008
  2. PAMIDRONATE [Suspect]
     Dosage: UNK UKN, UNK
     Route: 042
     Dates: start: 20111214, end: 20130904
  3. REVLIMID [Suspect]
     Dosage: UNK UKN, UNK
  4. BETAPRED [Suspect]
     Dosage: 0.5 MG, UNK
     Route: 048
  5. TRIOBE [Concomitant]
     Dosage: UNK UKN, UNK
  6. FRAGMIN [Concomitant]
     Dosage: UNK UKN, UNK
  7. OXYCONTIN [Concomitant]
     Dosage: UNK UKN, UNK
  8. LYRICA [Concomitant]
     Dosage: UNK UKN, UNK
  9. CIPRALEX                                /GFR/ [Concomitant]
     Dosage: UNK UKN, UNK
  10. AERIUS [Concomitant]
     Dosage: UNK UKN, UNK

REACTIONS (2)
  - Osteonecrosis [Not Recovered/Not Resolved]
  - Exposed bone in jaw [Unknown]
